FAERS Safety Report 7552658-6 (Version None)
Quarter: 2011Q2

REPORT INFORMATION
  Report Type: 
  Country: None (occurrence: None)
  Receive Date: 20110616
  Receipt Date: 20110606
  Transmission Date: 20111010
  Serious: Yes (Other)
  Sender: FDA-Public Use
  Company Number: IT-UCBSA-029996

PATIENT
  Age: 37 Year
  Sex: Female

DRUGS (5)
  1. TOPAMAX [Suspect]
     Indication: POISONING
     Dosage: 200 MG FILM-COATED TABLETS-60 TABLETS
     Dates: start: 20110228, end: 20110228
  2. KEPPRA [Suspect]
     Indication: POISONING
     Dosage: 500 MG FILM-COATED TABLETS FOR ORAL USE
     Route: 048
     Dates: start: 20110228, end: 20110228
  3. GARDENALE [Suspect]
     Indication: POISONING
     Dates: start: 20110228, end: 20110228
  4. PHENOBARBITAL TAB [Suspect]
     Dosage: 15 MG TABLETS
     Dates: start: 20110228
  5. ALCOHOLIC BEVERAGES [Suspect]
     Dates: start: 20110228

REACTIONS (1)
  - TOXICITY TO VARIOUS AGENTS [None]
